FAERS Safety Report 5154598-9 (Version None)
Quarter: 2006Q4

REPORT INFORMATION
  Report Type: 
  Country: None (occurrence: None)
  Receive Date: 20061114
  Receipt Date: 20061031
  Transmission Date: 20070319
  Serious: Yes (Death)
  Sender: FDA-Public Use
  Company Number: 2006BL006304

PATIENT
  Sex: Male

DRUGS (13)
  1. DEXAMETHASONE [Suspect]
     Indication: MULTIPLE MYELOMA
     Dosage: 40 MILLIGRAMS; 4/1 MONTH; ORAL
     Route: 048
  2. CYCLOPHOSPHAMIDE [Suspect]
     Indication: MULTIPLE MYELOMA
     Dosage: 300 MILLIGRAMS PER SQUARE METER; WEEKLY; ORAL
     Route: 048
  3. THALIDOMIDE (THALIDOMIDE) [Suspect]
     Indication: MULTIPLE MYELOMA
     Dosage: 50 MILLIGRAMS; ORAL
     Route: 048
  4. GRANISETRON [Concomitant]
  5. TRIMETHOPRIM [Concomitant]
  6. WARFARIN SODIUM [Concomitant]
  7. BISPHOSPHONATES [Concomitant]
  8. GRANULOCYTE COLONY [Concomitant]
  9. STIMULATING FACTOR [Concomitant]
  10. EPOGEN [Concomitant]
  11. NEBULIZED PENTAMIDINE [Concomitant]
  12. PROTON PUMP INHIBITOR [Concomitant]
  13. H2 RECEPTOR ANTAGONITS [Concomitant]

REACTIONS (1)
  - PNEUMOCYSTIS JIROVECI PNEUMONIA [None]
